FAERS Safety Report 6312078-9 (Version None)
Quarter: 2009Q3

REPORT INFORMATION
  Report Type: 
  Country: None (occurrence: None)
  Receive Date: 20090813
  Receipt Date: 20090813
  Transmission Date: 20100115
  Serious: Yes (Hospitalization)
  Sender: FDA-Public Use
  Company Number: None

PATIENT
  Age: 92 Year
  Sex: Male
  Weight: 61.2 kg

DRUGS (1)
  1. DIAZEPAM [Suspect]
     Indication: TOOTH EXTRACTION
     Dates: start: 20090729, end: 20090729

REACTIONS (4)
  - CONFUSIONAL STATE [None]
  - DELIRIUM [None]
  - GAIT DISTURBANCE [None]
  - SPEECH DISORDER [None]
